FAERS Safety Report 8011709-5 (Version None)
Quarter: 2011Q4

REPORT INFORMATION
  Report Type: 
  Country: None (occurrence: None)
  Receive Date: 20111228
  Receipt Date: 20111221
  Transmission Date: 20120403
  Serious: Yes (Death, Other)
  Sender: FDA-Public Use
  Company Number: PHHY2011JP109964

PATIENT
  Age: 49 Year
  Sex: Male

DRUGS (1)
  1. CERTICAN [Suspect]
     Indication: HEART TRANSPLANT
     Route: 048
     Dates: start: 20110325

REACTIONS (3)
  - NEOPLASM PROGRESSION [None]
  - DISEASE PROGRESSION [None]
  - PANCREATIC CARCINOMA [None]
